FAERS Safety Report 5322455-0 (Version None)
Quarter: 2007Q1

REPORT INFORMATION
  Report Type: 
  Country: None (occurrence: None)
  Receive Date: 20070220
  Receipt Date: 20061108
  Transmission Date: 20070707
  Serious: No
  Sender: FDA-Public Use
  Company Number: TPA2006A02001

PATIENT
  Sex: Female

DRUGS (1)
  1. ROZEREM [Suspect]
     Dosage: 8 MG, PER ORAL
     Route: 048

REACTIONS (3)
  - HEADACHE [None]
  - INITIAL INSOMNIA [None]
  - NAUSEA [None]
